FAERS Safety Report 5575076-9 (Version None)
Quarter: 2007Q4

REPORT INFORMATION
  Report Type: 
  Country: None (occurrence: None)
  Receive Date: 20071227
  Receipt Date: 20071217
  Transmission Date: 20080405
  Serious: Yes (Hospitalization)
  Sender: FDA-Public Use
  Company Number: NL-GENENTECH-253325

PATIENT
  Sex: Female

DRUGS (1)
  1. RITUXIMAB [Suspect]
     Indication: DRUG USE FOR UNKNOWN INDICATION
     Dosage: UNK UNK, UNKNOWN
     Route: 065

REACTIONS (1)
  - FEBRILE NEUTROPENIA [None]
